FAERS Safety Report 6675783-0 (Version None)
Quarter: 2010Q2

REPORT INFORMATION
  Report Type: 
  Country: None (occurrence: None)
  Receive Date: 20100412
  Receipt Date: 20100402
  Transmission Date: 20101027
  Serious: Yes (Hospitalization)
  Sender: FDA-Public Use
  Company Number: US-BIOGENIDEC-2009BI037194

PATIENT
  Age: 50 Year
  Sex: Male
  Weight: 104 kg

DRUGS (1)
  1. TYSABRI [Suspect]
     Indication: MULTIPLE SCLEROSIS
     Route: 042
     Dates: start: 20070925

REACTIONS (4)
  - BLADDER CATHETERISATION [None]
  - ESCHERICHIA SEPSIS [None]
  - STAPHYLOCOCCUS TEST POSITIVE [None]
  - URINARY TRACT INFECTION [None]
